FAERS Safety Report 20008027 (Version 3)
Quarter: 2022Q1

REPORT INFORMATION
  Report Type: Spontaneous
  Country: US (occurrence: US)
  Receive Date: 20211028
  Receipt Date: 20220127
  Transmission Date: 20220423
  Serious: No
  Sender: FDA-Public Use
  Company Number: US-BEH-2021137140

PATIENT
  Age: 69 Year
  Sex: Female

DRUGS (6)
  1. HIZENTRA [Suspect]
     Active Substance: HUMAN IMMUNOGLOBULIN G
     Indication: Immunodeficiency common variable
     Dosage: 1 GRAM, BIW
     Route: 058
     Dates: start: 20210301
  2. HIZENTRA [Suspect]
     Active Substance: HUMAN IMMUNOGLOBULIN G
     Dosage: 10 GRAM, BIW
     Route: 058
     Dates: start: 20210301
  3. HIZENTRA [Suspect]
     Active Substance: HUMAN IMMUNOGLOBULIN G
     Dosage: 1 GRAM, BIW
     Route: 058
     Dates: start: 20220110
  4. HIZENTRA [Suspect]
     Active Substance: HUMAN IMMUNOGLOBULIN G
     Dosage: 10 GRAM, BIW
     Route: 058
     Dates: start: 20220110
  5. HIZENTRA [Suspect]
     Active Substance: HUMAN IMMUNOGLOBULIN G
     Dosage: UNK
     Route: 065
     Dates: start: 20220106
  6. HIZENTRA [Suspect]
     Active Substance: HUMAN IMMUNOGLOBULIN G
     Dosage: UNK
     Route: 065

REACTIONS (28)
  - Pruritus [Unknown]
  - Urticaria [Unknown]
  - Erythema [Unknown]
  - Feeling hot [Unknown]
  - Headache [Unknown]
  - Ill-defined disorder [Unknown]
  - Pruritus [Unknown]
  - Recalled product administered [Unknown]
  - Urticaria [Unknown]
  - Recalled product administered [Unknown]
  - Fatigue [Unknown]
  - Recalled product administered [Unknown]
  - Chest discomfort [Unknown]
  - Recalled product administered [Unknown]
  - Pruritus [Unknown]
  - Urticaria [Unknown]
  - Fatigue [Unknown]
  - Chest discomfort [Unknown]
  - Pruritus [Unknown]
  - Recalled product administered [Unknown]
  - Swelling [Unknown]
  - Recalled product administered [Unknown]
  - Headache [Unknown]
  - Recalled product administered [Unknown]
  - Fatigue [Unknown]
  - Recalled product administered [Unknown]
  - Chest discomfort [Unknown]
  - Recalled product administered [Unknown]

NARRATIVE: CASE EVENT DATE: 20210101
